FAERS Safety Report 10382415 (Version 6)
Quarter: 2018Q3

REPORT INFORMATION
  Report Type: Report from Study
  Country: US (occurrence: US)
  Receive Date: 20140813
  Receipt Date: 20180820
  Transmission Date: 20181010
  Serious: Yes (Other)
  Sender: FDA-Public Use
  Company Number: US-SA-2014SA030621

PATIENT
  Age: 31 Year
  Sex: Female

DRUGS (3)
  1. TERIFLUNOMIDE [Suspect]
     Active Substance: TERIFLUNOMIDE
     Dosage: 14 MG,QD
     Route: 048
     Dates: end: 20170921
  2. TERIFLUNOMIDE [Suspect]
     Active Substance: TERIFLUNOMIDE
     Dosage: 14 MG, QD
     Route: 048
     Dates: start: 20180410
  3. TERIFLUNOMIDE [Suspect]
     Active Substance: TERIFLUNOMIDE
     Indication: MULTIPLE SCLEROSIS
     Dosage: 14 MG,QD
     Route: 048
     Dates: start: 20140220

REACTIONS (24)
  - Grip strength decreased [Recovered/Resolved]
  - Pain in extremity [Not Recovered/Not Resolved]
  - Multiple sclerosis relapse [Recovered/Resolved]
  - Drug dose omission [Unknown]
  - Hypoaesthesia [Recovered/Resolved]
  - Dysgraphia [Recovered/Resolved]
  - Diplopia [Unknown]
  - Gait disturbance [Unknown]
  - Drug ineffective [Unknown]
  - Bunion operation [Unknown]
  - Multiple sclerosis relapse [Unknown]
  - Vitamin D decreased [Unknown]
  - Burning sensation [Recovered/Resolved]
  - Muscle spasms [Recovering/Resolving]
  - Restless legs syndrome [Not Recovered/Not Resolved]
  - Nerve compression [Not Recovered/Not Resolved]
  - Paraesthesia [Recovered/Resolved]
  - Multiple sclerosis [Not Recovered/Not Resolved]
  - Paraesthesia [Recovered/Resolved]
  - Migraine [Recovering/Resolving]
  - Diarrhoea [Recovered/Resolved]
  - Alopecia [Unknown]
  - Blood potassium decreased [Unknown]
  - Underdose [Unknown]

NARRATIVE: CASE EVENT DATE: 2014
